FAERS Safety Report 8690868 (Version 5)
Quarter: 2013Q4

REPORT INFORMATION
  Report Type: Spontaneous
  Country: BR (occurrence: BR)
  Receive Date: 20120730
  Receipt Date: 20131203
  Transmission Date: 20140711
  Serious: Yes (Other)
  Sender: FDA-Public Use
  Company Number: BR-AMGEN-BRASP2012046417

PATIENT
  Age: 52 Year
  Sex: Female
  Weight: 78 kg

DRUGS (15)
  1. ENBREL [Suspect]
     Indication: RHEUMATOID ARTHRITIS
     Dosage: 50 MG, QWK
     Route: 058
     Dates: start: 201202, end: 20120710
  2. ENBREL [Suspect]
     Dosage: 50 MG, QWK
     Route: 058
     Dates: start: 2012, end: 20130114
  3. ENBREL [Suspect]
     Dosage: 50 MG, QWK
     Route: 065
  4. ATENOLOL [Concomitant]
     Dosage: UNK
  5. CHLOROTHIAZIDE [Concomitant]
     Dosage: UNK
  6. ALLOPURINOL [Concomitant]
     Dosage: UNK
  7. PIROXICAM [Concomitant]
     Dosage: UNK
  8. METHOTREXATE [Concomitant]
     Dosage: UNK
  9. SERTRALINE [Concomitant]
     Dosage: UNK
  10. SONEBON [Concomitant]
     Dosage: UNK
  11. OMEPRAZOLE [Concomitant]
     Dosage: UNK
  12. AMILORIDE [Concomitant]
     Dosage: UNK
  13. HYDROCHLOROTHIAZIDE [Concomitant]
     Dosage: UNK
  14. METFORMIN [Concomitant]
     Dosage: UNK
  15. DOXEPIN [Concomitant]
     Dosage: UNK

REACTIONS (12)
  - Hip deformity [Unknown]
  - Gallbladder disorder [Unknown]
  - Needle issue [Unknown]
  - Pain [Unknown]
  - Hypokinesia [Unknown]
  - Arthralgia [Unknown]
  - Injection site mass [Unknown]
  - Gastrointestinal infection [Unknown]
  - Injection site erythema [Unknown]
  - Injection site pruritus [Unknown]
  - Urinary tract infection [Unknown]
  - Injection site pain [Unknown]
